FAERS Safety Report 9331841 (Version 1)
Quarter: 2013Q2

REPORT INFORMATION
  Report Type: Spontaneous
  Country: US (occurrence: None)
  Receive Date: 20130603
  Receipt Date: 20130603
  Transmission Date: 20140414
  Serious: Yes (Other)
  Sender: FDA-Public Use
  Company Number: IPC201305-000202

PATIENT
  Age: 62 Year
  Sex: Male

DRUGS (9)
  1. METOPROLOL TARTRATE (METOPROLOL TARTRATE) (TABLETS) (METOPROLOL TARTRATE) [Suspect]
  2. AMLODIPINE BESILATE [Suspect]
  3. ISORORBIDE DINITRATE [Suspect]
  4. LISINOPRIL [Suspect]
  5. ASPIRIN [Suspect]
  6. CLOPIDOGREL [Suspect]
  7. FINOFIBRATE [Suspect]
  8. SIMVASTATIN [Suspect]
  9. RANITIDINE [Suspect]

REACTIONS (1)
  - Cutaneous lupus erythematosus [None]
